FAERS Safety Report 6238962-2 (Version None)
Quarter: 2009Q2

REPORT INFORMATION
  Report Type: 
  Country: None (occurrence: None)
  Receive Date: 20090622
  Receipt Date: 20090609
  Transmission Date: 20091009
  Serious: Yes (Other)
  Sender: FDA-Public Use
  Company Number: PHHY2009GB23207

PATIENT
  Sex: Female

DRUGS (4)
  1. CLOZARIL [Suspect]
     Dosage: 100 MG
     Dates: start: 20090608
  2. CLONAZEPAM [Suspect]
     Dosage: 0.5 MG - 1.5 MG
     Dates: start: 20090608
  3. OLANZAPINE [Concomitant]
     Indication: SCHIZOPHRENIA
  4. LAMOTRIGINE [Concomitant]
     Indication: SCHIZOPHRENIA

REACTIONS (4)
  - ACCIDENTAL EXPOSURE [None]
  - BLOOD PRESSURE INCREASED [None]
  - HEART RATE INCREASED [None]
  - VOMITING [None]
